FAERS Safety Report 8986364 (Version 1)
Quarter: 2012Q4

REPORT INFORMATION
  Report Type: 
  Country: MX (occurrence: MX)
  Receive Date: 20121226
  Receipt Date: 20121226
  Transmission Date: 20130627
  Serious: Yes (Other)
  Sender: FDA-Public Use
  Company Number: PHHY2012MX119034

PATIENT
  Sex: Male

DRUGS (1)
  1. RITALIN LA [Suspect]
     Indication: ATTENTION DEFICIT/HYPERACTIVITY DISORDER
     Dosage: 20 mg, daily
     Route: 048
     Dates: start: 20110909

REACTIONS (4)
  - Yellow skin [Not Recovered/Not Resolved]
  - Tachycardia [Not Recovered/Not Resolved]
  - Somnolence [Not Recovered/Not Resolved]
  - Dysarthria [Not Recovered/Not Resolved]
